FAERS Safety Report 6329885-9 (Version None)
Quarter: 2009Q3

REPORT INFORMATION
  Report Type: 
  Country: None (occurrence: None)
  Receive Date: 20090825
  Receipt Date: 20090813
  Transmission Date: 20100115
  Serious: Yes (Death)
  Sender: FDA-Public Use
  Company Number: ADR15292009

PATIENT
  Age: 49 Year
  Sex: Female

DRUGS (10)
  1. MEFFORMIN [Suspect]
     Indication: DIABETES MELLITUS
     Dosage: 1000MG (2/1 DAY), ORAL
     Route: 048
     Dates: start: 20060101
  2. AMISULPRIDE(600MG -1DAY) [Concomitant]
  3. DIAZEPAM [Concomitant]
  4. HYDROCORTISONE [Concomitant]
  5. INSULIN [Concomitant]
  6. NULYTELY [Concomitant]
  7. QUETIAPINE [Concomitant]
  8. SENNA [Concomitant]
  9. TRAZODONE [Concomitant]
  10. ZOPICLONE [Concomitant]

REACTIONS (3)
  - DRUG LEVEL INCREASED [None]
  - OVERDOSE [None]
  - RENAL IMPAIRMENT [None]
